FAERS Safety Report 21755168 (Version 1)
Quarter: 2022Q4

REPORT INFORMATION
  Report Type: Spontaneous
  Country: HR (occurrence: HR)
  Receive Date: 20221220
  Receipt Date: 20221220
  Transmission Date: 20230113
  Serious: Yes (Other)
  Sender: FDA-Public Use
  Company Number: None

PATIENT
  Age: 13 Year
  Sex: Female
  Weight: 50 kg

DRUGS (6)
  1. ACETAMINOPHEN [Suspect]
     Active Substance: ACETAMINOPHEN
     Indication: Product used for unknown indication
     Dosage: 4000 MG, QD
     Route: 048
     Dates: start: 20221102, end: 20221102
  2. ANDOL [Suspect]
     Active Substance: ASPIRIN
     Indication: Product used for unknown indication
     Dosage: 1000 MG, QD
     Route: 048
     Dates: start: 20221102, end: 20221102
  3. FENOFIBRATE [Suspect]
     Active Substance: FENOFIBRATE
     Indication: Product used for unknown indication
     Dosage: 1450 MG, QD
     Route: 048
     Dates: start: 20221102, end: 20221102
  4. SIMVASTATIN [Suspect]
     Active Substance: SIMVASTATIN
     Indication: Product used for unknown indication
     Dosage: 200 MG, QD
     Route: 048
     Dates: start: 20221102, end: 20221102
  5. PHOLCODINE [Suspect]
     Active Substance: PHOLCODINE
     Indication: Product used for unknown indication
     Dosage: 100 MG, QD
     Route: 048
     Dates: start: 20221102, end: 20221102
  6. LORATADINE [Suspect]
     Active Substance: LORATADINE
     Indication: Product used for unknown indication
     Dosage: 100 MG, QD
     Route: 048
     Dates: start: 20221102, end: 20221102

REACTIONS (3)
  - Suicide attempt [Unknown]
  - Somnolence [Unknown]
  - Intentional overdose [Unknown]

NARRATIVE: CASE EVENT DATE: 20221102
